FAERS Safety Report 21668049 (Version 2)
Quarter: 2023Q4

REPORT INFORMATION
  Report Type: Spontaneous
  Country: US (occurrence: US)
  Receive Date: 20221201
  Receipt Date: 20231218
  Transmission Date: 20240109
  Serious: Yes (Other)
  Sender: FDA-Public Use
  Company Number: US-PFIZER INC-202201340374

PATIENT
  Age: 51 Year
  Sex: Male

DRUGS (1)
  1. FELDENE [Suspect]
     Active Substance: PIROXICAM
     Dosage: UNK

REACTIONS (7)
  - Renal impairment [Unknown]
  - Leukaemia [Unknown]
  - Blood disorder [Unknown]
  - Immune system disorder [Unknown]
  - Dehydration [Unknown]
  - White blood cell count increased [Unknown]
  - Anger [Unknown]
